FAERS Safety Report 20281872 (Version 2)
Quarter: 2022Q1

REPORT INFORMATION
  Report Type: Report from Study
  Country: FI (occurrence: FI)
  Receive Date: 20220103
  Receipt Date: 20220211
  Transmission Date: 20220423
  Serious: Yes (Life-Threatening, Other)
  Sender: FDA-Public Use
  Company Number: FI-MYLANLABS-2021M1097076

PATIENT
  Age: 68 Year
  Sex: Female

DRUGS (19)
  1. CLOZAPINE [Suspect]
     Active Substance: CLOZAPINE
     Indication: Schizophrenia
     Dosage: 175 MILLIGRAM, QD (START DATE: SEP-2021)
     Dates: end: 20211227
  2. LOSARTAN [Concomitant]
     Active Substance: LOSARTAN
     Dosage: 2 DOSAGE FORM, AM
  3. SIMVASTATIN [Concomitant]
     Active Substance: SIMVASTATIN
     Dosage: 1 DOSAGE FORM, PM
  4. ASPIRIN [Concomitant]
     Active Substance: ASPIRIN
     Dosage: 1 DOSAGE FORM, QD
  5. LINAGLIPTIN [Concomitant]
     Active Substance: LINAGLIPTIN
     Dosage: 1 DOSAGE FORM, QD
  6. LANTUS [Concomitant]
     Active Substance: INSULIN GLARGINE
     Dosage: 14 UNITS, 1 INJECTION DAILY
     Route: 058
  7. GAVISCON [Concomitant]
     Active Substance: ALUMINUM HYDROXIDE\MAGNESIUM CARBONATE
     Indication: Gastrooesophageal reflux disease
     Dosage: 20 MILLILITER, BID
  8. GAVISCON [Concomitant]
     Active Substance: ALUMINUM HYDROXIDE\MAGNESIUM CARBONATE
     Dosage: 20 MILLILITER, PRN
  9. POLYETHYLENE GLYCOL 4000 [Concomitant]
     Active Substance: POLYETHYLENE GLYCOL 4000
     Dosage: 1 DOSAGE FORM, AM
  10. POLYETHYLENE GLYCOL 4000 [Concomitant]
     Active Substance: POLYETHYLENE GLYCOL 4000
     Dosage: 1 DOSAGE FORM, PRN (WHEN NEEDED 3 TIMES DAILY)
  11. CALCIUM\CHOLECALCIFEROL [Concomitant]
     Active Substance: CALCIUM\CHOLECALCIFEROL
     Dosage: 1 DOSAGE FORM, QD
  12. MAGNESIUM HYDROXIDE [Concomitant]
     Active Substance: MAGNESIUM HYDROXIDE
     Dosage: 1 DOSAGE FORM, PM
  13. PANTOPRAZOLE [Concomitant]
     Active Substance: PANTOPRAZOLE
     Dosage: 20MG-40MG, QD (START DATE:28-JUN-2021)
     Dates: end: 20211227
  14. NITROGLYCERIN ORION [Concomitant]
     Dosage: 1 DOSAGE FORM, PRN
     Route: 060
  15. Panadol forte [Concomitant]
     Dosage: 1 DOSAGE FORM, PRN (1-2 TIMES DAILY WHEN NEEDED)
  16. ZOPICLONE [Concomitant]
     Active Substance: ZOPICLONE
     Dosage: HALF A DOSE, PRN (ONCE DAILY WHEN NEEDED)
  17. SODIUM PICOSULFATE [Concomitant]
     Active Substance: SODIUM PICOSULFATE
     Indication: Constipation
     Dosage: 15 DROPS, PRN
  18. Microlax [Concomitant]
     Dosage: 1 DOSAGE FORM, PRN (1-2 TIMES DAILY WHEN NEEDED)
  19. CERALAN [Concomitant]
     Dosage: AFTER WASHING

REACTIONS (5)
  - Gastrointestinal haemorrhage [Unknown]
  - White blood cell count decreased [Recovering/Resolving]
  - Neutrophil count decreased [Recovered/Resolved]
  - Lymphopenia [Unknown]
  - Haemoglobin decreased [Unknown]

NARRATIVE: CASE EVENT DATE: 20210101
